FAERS Safety Report 18437457 (Version 1)
Quarter: 2020Q4

REPORT INFORMATION
  Report Type: Spontaneous
  Country: US (occurrence: US)
  Receive Date: 20201028
  Receipt Date: 20201028
  Transmission Date: 20210114
  Serious: Yes (Death, Other)
  Sender: FDA-Public Use
  Company Number: US-LEUCADIA PHARMACEUTICALS-2020LEU000333

PATIENT
  Age: 61 Year
  Sex: Male

DRUGS (2)
  1. OPIOIDS UNSPECIFIED [Suspect]
     Active Substance: UNSPECIFIED INGREDIENT
     Indication: PRODUCT USED FOR UNKNOWN INDICATION
  2. ACETAMINOPHEN. [Suspect]
     Active Substance: ACETAMINOPHEN
     Indication: PRODUCT USED FOR UNKNOWN INDICATION

REACTIONS (9)
  - Gastrointestinal haemorrhage [Unknown]
  - Myocardial infarction [Unknown]
  - Acute kidney injury [Unknown]
  - Coma [Unknown]
  - Respiratory depression [Unknown]
  - Metabolic acidosis [Unknown]
  - Toxicity to various agents [Fatal]
  - Hypotension [Unknown]
  - Anion gap [Unknown]

NARRATIVE: CASE EVENT DATE: 2019
